FAERS Safety Report 10596399 (Version 1)
Quarter: 2014Q4

REPORT INFORMATION
  Report Type: Spontaneous
  Country: US (occurrence: US)
  Receive Date: 20141120
  Receipt Date: 20141120
  Transmission Date: 20150529
  Serious: Yes (Other)
  Sender: FDA-Public Use
  Company Number: US-ACTAVIS-2014-24555

PATIENT
  Age: 84 Year
  Sex: Female

DRUGS (1)
  1. ZOLEDRONIC ACID (ACTAVIS LLC) [Suspect]
     Active Substance: ZOLEDRONIC ACID
     Indication: OSTEOPOROSIS
     Dosage: UNK, UNK
     Route: 042

REACTIONS (3)
  - Temporal arteritis [Recovering/Resolving]
  - Optic ischaemic neuropathy [Not Recovered/Not Resolved]
  - Blindness unilateral [None]
